FAERS Safety Report 9487543 (Version 2)
Quarter: 2013Q3

REPORT INFORMATION
  Report Type: Spontaneous
  Country: US (occurrence: US)
  Receive Date: 20130725
  Receipt Date: 20130725
  Transmission Date: 20140515
  Serious: No
  Sender: FDA-Public Use
  Company Number: US-GLAXOSMITHKLINE-A0804836A

PATIENT
  Age: 53 Year
  Sex: Female
  Weight: 73.6 kg

DRUGS (2)
  1. AVANDIA [Suspect]
     Indication: DIABETES MELLITUS
     Dosage: 8MG PER DAY
     Route: 048
     Dates: start: 20060322, end: 200706
  2. AVANDAMET [Suspect]
     Indication: DIABETES MELLITUS
     Route: 065
     Dates: start: 2006, end: 200706

REACTIONS (4)
  - Chest discomfort [Not Recovered/Not Resolved]
  - Cardiac murmur [Unknown]
  - Cough [Unknown]
  - Injury [Unknown]
